FAERS Safety Report 14702138 (Version 2)
Quarter: 2018Q2

REPORT INFORMATION
  Report Type: Spontaneous
  Country: US (occurrence: US)
  Receive Date: 20180401
  Receipt Date: 20180518
  Transmission Date: 20180711
  Serious: No
  Sender: FDA-Public Use
  Company Number: US-JNJFOC-20180234511

PATIENT
  Age: 47 Year
  Sex: Male
  Weight: 95.26 kg

DRUGS (6)
  1. SYNTHROID [Concomitant]
     Active Substance: LEVOTHYROXINE SODIUM
     Indication: HYPOTHYROIDISM
     Route: 048
     Dates: start: 1968
  2. FENTANYL. [Suspect]
     Active Substance: FENTANYL
     Indication: PAIN
     Route: 062
     Dates: start: 201602, end: 201801
  3. DEPO TESTOSTERONE [Concomitant]
     Active Substance: TESTOSTERONE
     Indication: HYPOGONADISM
     Route: 030
     Dates: start: 2002
  4. CORTEF [Concomitant]
     Active Substance: HYDROCORTISONE
     Indication: HYPERPITUITARISM
     Route: 048
     Dates: start: 1996
  5. CYTOMEL [Concomitant]
     Active Substance: LIOTHYRONINE SODIUM
     Indication: HYPOTHYROIDISM
     Route: 048
     Dates: start: 1988
  6. CELEXA [Concomitant]
     Active Substance: CITALOPRAM HYDROBROMIDE
     Indication: IMPAIRED GASTRIC EMPTYING
     Route: 048

REACTIONS (4)
  - Application site rash [Recovered/Resolved]
  - Application site infection [Recovered/Resolved]
  - Dermatitis contact [Recovered/Resolved]
  - Application site pruritus [Recovered/Resolved]

NARRATIVE: CASE EVENT DATE: 201602
